FAERS Safety Report 9438187 (Version 1)
Quarter: 2013Q3

REPORT INFORMATION
  Report Type: Spontaneous
  Country: US (occurrence: US)
  Receive Date: 20130802
  Receipt Date: 20130802
  Transmission Date: 20140515
  Serious: No
  Sender: FDA-Public Use
  Company Number: US-BRISTOL-MYERS SQUIBB COMPANY-16873903

PATIENT
  Age: 57 Year
  Sex: Male
  Weight: 69.84 kg

DRUGS (1)
  1. COUMADIN [Suspect]
     Dosage: PRESCRIPTION #: 400530924
     Dates: start: 20120815

REACTIONS (2)
  - Joint swelling [Unknown]
  - Skin discolouration [Unknown]
